FAERS Safety Report 12455179 (Version 2)
Quarter: 2016Q2

REPORT INFORMATION
  Report Type: Report from Study
  Country: IL (occurrence: IL)
  Receive Date: 20160610
  Receipt Date: 20160624
  Transmission Date: 20160815
  Serious: Yes (Hospitalization)
  Sender: FDA-Public Use
  Company Number: PHHY2016IL079448

PATIENT
  Age: 32 Year
  Sex: Female

DRUGS (5)
  1. INSULIN [Concomitant]
     Active Substance: INSULIN NOS
     Indication: DIABETES MELLITUS
     Route: 058
  2. SOM230 [Suspect]
     Active Substance: PASIREOTIDE
     Indication: ACROMEGALY
     Dosage: 60 MG, UNK
     Route: 058
     Dates: start: 201508, end: 20160317
  3. CABERGOLINE. [Concomitant]
     Active Substance: CABERGOLINE
     Indication: PRODUCT USED FOR UNKNOWN INDICATION
     Route: 065
  4. VITAMIN D [Concomitant]
     Active Substance: CHOLECALCIFEROL
     Indication: PRODUCT USED FOR UNKNOWN INDICATION
     Route: 065
  5. ZOLEDRONIC ACID [Concomitant]
     Active Substance: ZOLEDRONIC ACID
     Indication: PRODUCT USED FOR UNKNOWN INDICATION
     Route: 042

REACTIONS (11)
  - Polyuria [Unknown]
  - Fatigue [Unknown]
  - Dry mouth [Unknown]
  - Confusional state [Unknown]
  - Drug ineffective [Unknown]
  - Weight decreased [Unknown]
  - Diabetic ketoacidosis [Recovering/Resolving]
  - Vomiting [Unknown]
  - Asthenia [Unknown]
  - Vision blurred [Unknown]
  - Polydipsia [Unknown]

NARRATIVE: CASE EVENT DATE: 20160602
